FAERS Safety Report 5895768-1 (Version None)
Quarter: 2008Q3

REPORT INFORMATION
  Report Type: 
  Country: None (occurrence: None)
  Receive Date: 20080828
  Receipt Date: 20070710
  Transmission Date: 20090109
  Serious: Yes (Hospitalization)
  Sender: FDA-Public Use
  Company Number: 200714951US

PATIENT
  Sex: Male

DRUGS (1)
  1. LASIX [Suspect]

REACTIONS (1)
  - BLOOD PRESSURE DECREASED [None]
